FAERS Safety Report 17460514 (Version 2)
Quarter: 2020Q1

REPORT INFORMATION
  Report Type: Spontaneous
  Country: US (occurrence: US)
  Receive Date: 20200226
  Receipt Date: 20200227
  Transmission Date: 20200409
  Serious: No
  Sender: FDA-Public Use
  Company Number: US-PFIZER INC-2020085318

PATIENT
  Age: 54 Year

DRUGS (1)
  1. LYRICA [Suspect]
     Active Substance: PREGABALIN
     Dosage: UNK

REACTIONS (4)
  - Withdrawal syndrome [Unknown]
  - Cognitive disorder [Unknown]
  - Discomfort [Unknown]
  - Feeling abnormal [Unknown]
